FAERS Safety Report 17726859 (Version 1)
Quarter: 2020Q2

REPORT INFORMATION
  Report Type: Report from Study
  Country: BR (occurrence: BR)
  Receive Date: 20200430
  Receipt Date: 20200430
  Transmission Date: 20200714
  Serious: Yes (Other)
  Sender: FDA-Public Use
  Company Number: BR-ROCHE-2251688

PATIENT
  Age: 80 Year
  Sex: Male
  Weight: 74 kg

DRUGS (12)
  1. ESBRIET [Suspect]
     Active Substance: PIRFENIDONE
     Indication: IDIOPATHIC PULMONARY FIBROSIS
     Route: 048
     Dates: start: 20181227
  2. CYMBI [DULOXETINE HYDROCHLORIDE] [Concomitant]
     Active Substance: DULOXETINE HYDROCHLORIDE
     Indication: PROPHYLAXIS
  3. ESBRIET [Suspect]
     Active Substance: PIRFENIDONE
     Route: 048
     Dates: start: 201812
  4. CARBAMAZEPINE. [Concomitant]
     Active Substance: CARBAMAZEPINE
     Indication: INTRACRANIAL ANEURYSM
     Route: 065
  5. OXCARBAZEPINE. [Concomitant]
     Active Substance: OXCARBAZEPINE
     Indication: INTRACRANIAL ANEURYSM
     Route: 065
  6. RANITIDINE. [Concomitant]
     Active Substance: RANITIDINE
     Indication: GASTROOESOPHAGEAL REFLUX DISEASE
     Route: 065
  7. AMOXICILLIN. [Concomitant]
     Active Substance: AMOXICILLIN
  8. CYMBI [DULOXETINE HYDROCHLORIDE] [Concomitant]
     Active Substance: DULOXETINE HYDROCHLORIDE
     Indication: PAIN
     Route: 065
  9. LOSARTAN POTASSIUM. [Concomitant]
     Active Substance: LOSARTAN POTASSIUM
     Indication: HYPERTENSION
     Dosage: 1 TABLET
     Route: 065
  10. DOMPERIDONE [Concomitant]
     Active Substance: DOMPERIDONE
     Indication: GASTROOESOPHAGEAL REFLUX DISEASE
     Dosage: 3 TABLETS
     Route: 065
  11. LANSOPRAZOLE. [Concomitant]
     Active Substance: LANSOPRAZOLE
     Indication: GASTROOESOPHAGEAL REFLUX DISEASE
     Dosage: 1 TABLET EVERY NIGHT
     Route: 065
  12. ATROVENT [Concomitant]
     Active Substance: IPRATROPIUM BROMIDE
     Dosage: 30 DROPS WITH SALINE SOLUTION 2 OR 3 TIMES DAILY
     Route: 055

REACTIONS (18)
  - Vitamin D decreased [Unknown]
  - Erythema [Recovered/Resolved]
  - Erysipelas [Not Recovered/Not Resolved]
  - Skin papilloma [Not Recovered/Not Resolved]
  - Fall [Unknown]
  - Rash [Recovered/Resolved]
  - Limb mass [Recovering/Resolving]
  - Peripheral swelling [Not Recovered/Not Resolved]
  - Mass [Recovering/Resolving]
  - Purpura [Recovering/Resolving]
  - Malaise [Unknown]
  - Body temperature fluctuation [Recovering/Resolving]
  - Somnolence [Not Recovered/Not Resolved]
  - Nausea [Unknown]
  - Sebaceous gland disorder [Not Recovered/Not Resolved]
  - Tooth disorder [Recovering/Resolving]
  - Nausea [Recovered/Resolved]
  - Pruritus [Not Recovered/Not Resolved]

NARRATIVE: CASE EVENT DATE: 2019
